FAERS Safety Report 23088137 (Version 2)
Quarter: 2023Q4

REPORT INFORMATION
  Report Type: Report from Study
  Country: US (occurrence: US)
  Receive Date: 20231020
  Receipt Date: 20231201
  Transmission Date: 20240109
  Serious: No
  Sender: FDA-Public Use
  Company Number: US-ACADIA PHARMACEUTICALS INC.-ACA-2023-PIM-004362

PATIENT
  Sex: Male

DRUGS (1)
  1. NUPLAZID [Suspect]
     Active Substance: PIMAVANSERIN TARTRATE
     Indication: Parkinson^s disease psychosis
     Dosage: 34 MILLIGRAM, QD
     Route: 048

REACTIONS (7)
  - Delirium [Not Recovered/Not Resolved]
  - Mobility decreased [Unknown]
  - Dementia [Unknown]
  - Abnormal behaviour [Unknown]
  - Oedema peripheral [Unknown]
  - Confusional state [Unknown]
  - Hallucination, visual [Not Recovered/Not Resolved]
